FAERS Safety Report 17096008 (Version 1)
Quarter: 2019Q4

REPORT INFORMATION
  Report Type: Spontaneous
  Country: IT (occurrence: IT)
  Receive Date: 20191202
  Receipt Date: 20191202
  Transmission Date: 20200122
  Serious: Yes (Other)
  Sender: FDA-Public Use
  Company Number: IT-ACCORD-162898

PATIENT
  Age: 61 Year
  Sex: Female

DRUGS (8)
  1. GEMCITABINE/GEMCITABINE HYDROCHLORIDE [Suspect]
     Active Substance: GEMCITABINE\GEMCITABINE HYDROCHLORIDE
     Indication: LUNG NEOPLASM MALIGNANT
     Route: 042
     Dates: start: 20190515, end: 20190718
  2. TRIATEC [Concomitant]
     Dosage: STRENGTH: 10 MG
  3. TOTALIP [Concomitant]
     Active Substance: ATORVASTATIN
     Dosage: STRENGTH: 40 MG
  4. DOBETIN [Concomitant]
  5. CARDIOASPIRIN [Concomitant]
     Active Substance: ASPIRIN
     Dosage: STRENGTH: 100 MG
  6. CISPLATIN. [Suspect]
     Active Substance: CISPLATIN
     Indication: LUNG NEOPLASM MALIGNANT
     Route: 042
     Dates: start: 20190515, end: 20190718
  7. METFORMIN [Concomitant]
     Active Substance: METFORMIN HYDROCHLORIDE
  8. OMEPRAZEN [Concomitant]
     Active Substance: OMEPRAZOLE
     Dosage: STRENGTH: 10 MG

REACTIONS (2)
  - Dehydration [Recovering/Resolving]
  - Renal failure [Recovering/Resolving]

NARRATIVE: CASE EVENT DATE: 20190718
